FAERS Safety Report 18031383 (Version 1)
Quarter: 2020Q3

REPORT INFORMATION
  Report Type: Spontaneous
  Country: US (occurrence: US)
  Receive Date: 20200716
  Receipt Date: 20200716
  Transmission Date: 20201103
  Serious: Yes (Other)
  Sender: FDA-Public Use
  Company Number: None

PATIENT
  Age: 29 Year
  Sex: Female
  Weight: 60.3 kg

DRUGS (1)
  1. LINZESS [Suspect]
     Active Substance: LINACLOTIDE
     Indication: IRRITABLE BOWEL SYNDROME
     Dosage: ?          QUANTITY:30 CAPSULE(S);?
     Route: 048
     Dates: start: 20200715, end: 20200716

REACTIONS (9)
  - Vomiting [None]
  - Abdominal pain [None]
  - Nausea [None]
  - Diarrhoea [None]
  - Abdominal pain upper [None]
  - Hyperhidrosis [None]
  - Faecal vomiting [None]
  - Chills [None]
  - Hot flush [None]

NARRATIVE: CASE EVENT DATE: 20200716
